FAERS Safety Report 9342288 (Version 1)
Quarter: 2013Q2

REPORT INFORMATION
  Report Type: Spontaneous
  Country: IE (occurrence: IE)
  Receive Date: 20130611
  Receipt Date: 20130611
  Transmission Date: 20140414
  Serious: Yes (Other)
  Sender: FDA-Public Use
  Company Number: IE-PFIZER INC-2013174719

PATIENT
  Age: 6 Decade
  Sex: Female

DRUGS (3)
  1. LYRICA [Suspect]
     Indication: PAIN
  2. OXYCONTIN [Concomitant]
  3. TYLEX [Concomitant]

REACTIONS (1)
  - Drug abuse [Unknown]
